FAERS Safety Report 8104081-3 (Version None)
Quarter: 2012Q1

REPORT INFORMATION
  Report Type: 
  Country: None (occurrence: None)
  Receive Date: 20120201
  Receipt Date: 20120130
  Transmission Date: 20120608
  Serious: No
  Sender: FDA-Public Use
  Company Number: US-PFIZER INC-2011195298

PATIENT
  Sex: Female
  Weight: 95.238 kg

DRUGS (4)
  1. NAVANE [Suspect]
     Indication: PSYCHOTIC DISORDER
     Dosage: UNK, 1X/DAY
     Route: 048
     Dates: start: 19770101
  2. NASONEX [Concomitant]
     Indication: RHINITIS ALLERGIC
     Dosage: UNK
  3. THIOTHIXENE HCL [Suspect]
     Dosage: UNK
  4. THIOTHIXENE HCL [Suspect]
     Indication: PSYCHOTIC DISORDER
     Dosage: UNK
     Route: 048

REACTIONS (3)
  - HALLUCINATION [None]
  - GASTROOESOPHAGEAL REFLUX DISEASE [None]
  - PAIN [None]
